FAERS Safety Report 11987489 (Version 1)
Quarter: 2016Q1

REPORT INFORMATION
  Report Type: Spontaneous
  Country: US (occurrence: None)
  Receive Date: 20160201
  Receipt Date: 20160201
  Transmission Date: 20160526
  Serious: No
  Sender: FDA-Public Use
  Company Number: None

PATIENT
  Age: 61 Year
  Sex: Female
  Weight: 115.67 kg

DRUGS (3)
  1. SEROQUEL XR [Suspect]
     Active Substance: QUETIAPINE FUMARATE
     Indication: INSOMNIA
     Dosage: 1 PILL AT BEDTIME TAKEN BY MOUTH
     Route: 048
  2. METOPROLOL. [Concomitant]
     Active Substance: METOPROLOL
  3. IRON TABLETS TABLET [Concomitant]
     Active Substance: IRON

REACTIONS (12)
  - Headache [None]
  - Fatigue [None]
  - Dementia [None]
  - Dizziness [None]
  - Night sweats [None]
  - Restlessness [None]
  - Anxiety [None]
  - Palpitations [None]
  - Vision blurred [None]
  - Muscle fatigue [None]
  - Hunger [None]
  - Musculoskeletal stiffness [None]
